FAERS Safety Report 4430235-3 (Version None)
Quarter: 2004Q3

REPORT INFORMATION
  Report Type: 
  Country: None (occurrence: None)
  Receive Date: 20040818
  Receipt Date: 20040813
  Transmission Date: 20050211
  Serious: Yes (Hospitalization)
  Sender: FDA-Public Use
  Company Number: 04-07-0973

PATIENT
  Age: 67 Year
  Sex: Male
  Weight: 83.4619 kg

DRUGS (8)
  1. CLOZAPINE [Suspect]
     Indication: DELUSION
     Dosage: 50MG BID ORAL;  200MG QHS ORAL
     Route: 048
     Dates: start: 20030901
  2. CLOZAPINE [Suspect]
     Indication: DEMENTIA
     Dosage: 50MG BID ORAL;  200MG QHS ORAL
     Route: 048
     Dates: start: 20030901
  3. CLOZAPINE [Suspect]
     Indication: DEPRESSION
     Dosage: 50MG BID ORAL;  200MG QHS ORAL
     Route: 048
     Dates: start: 20030901
  4. CLOZAPINE [Suspect]
     Indication: PARKINSON'S DISEASE
     Dosage: 50MG BID ORAL;  200MG QHS ORAL
     Route: 048
     Dates: start: 20030901
  5. CLOZAPINE [Suspect]
     Indication: DELUSION
     Dosage: 50MG BID ORAL;  200MG QHS ORAL
     Route: 048
     Dates: start: 20030901
  6. CLOZAPINE [Suspect]
     Indication: DEMENTIA
     Dosage: 50MG BID ORAL;  200MG QHS ORAL
     Route: 048
     Dates: start: 20030901
  7. CLOZAPINE [Suspect]
     Indication: DEPRESSION
     Dosage: 50MG BID ORAL;  200MG QHS ORAL
     Route: 048
     Dates: start: 20030901
  8. CLOZAPINE [Suspect]
     Indication: PARKINSON'S DISEASE
     Dosage: 50MG BID ORAL;  200MG QHS ORAL
     Route: 048
     Dates: start: 20030901

REACTIONS (5)
  - DELUSION [None]
  - DEMENTIA [None]
  - DEPRESSIVE DELUSION [None]
  - PARANOIA [None]
  - URINARY TRACT INFECTION [None]
